FAERS Safety Report 8932469 (Version 1)
Quarter: 2012Q4

REPORT INFORMATION
  Report Type: Spontaneous
  Country: US (occurrence: None)
  Receive Date: 20121126
  Receipt Date: 20121126
  Transmission Date: 20130627
  Serious: Yes (Other)
  Sender: FDA-Public Use
  Company Number: None

PATIENT
  Age: 46 Year
  Sex: Male

DRUGS (2)
  1. URSODIOL [Suspect]
     Indication: SCLEROSING CHOLANGITIS
     Dosage: 2 TABLETS
     Route: 048
     Dates: start: 20051129, end: 20061206
  2. URSODIOL [Suspect]
     Indication: CIRRHOSIS LIVER
     Dosage: 2 TABLETS
     Route: 048
     Dates: start: 20051129, end: 20061206

REACTIONS (3)
  - Pruritus [None]
  - Product substitution issue [None]
  - Drug ineffective [None]
